FAERS Safety Report 6398529-2 (Version None)
Quarter: 2009Q4

REPORT INFORMATION
  Report Type: 
  Country: None (occurrence: None)
  Receive Date: 20091007
  Receipt Date: 20090923
  Transmission Date: 20100525
  Serious: Yes (Other)
  Sender: FDA-Public Use
  Company Number: 2009274135

PATIENT
  Sex: Male

DRUGS (1)
  1. FRAGMIN [Suspect]
     Indication: ANTICOAGULANT THERAPY

REACTIONS (3)
  - HAEMATOMA [None]
  - OEDEMA [None]
  - POST PROCEDURAL HAEMORRHAGE [None]
